FAERS Safety Report 15500178 (Version 1)
Quarter: 2018Q4

REPORT INFORMATION
  Report Type: Spontaneous
  Country: US (occurrence: US)
  Receive Date: 20181015
  Receipt Date: 20181015
  Transmission Date: 20190205
  Serious: Yes (Other)
  Sender: FDA-Public Use
  Company Number: US-STRIDES ARCOLAB LIMITED-2018SP008962

PATIENT

DRUGS (1)
  1. VANCOMYCIN [Suspect]
     Active Substance: VANCOMYCIN
     Indication: INFECTION PROPHYLAXIS
     Dosage: 10MG IN 0.2ML ADDED TO 500ML BALANCED SALT SOLUTION
     Route: 031

REACTIONS (3)
  - Haemorrhagic vasculitis [Recovered/Resolved]
  - Retinal vasculitis [Recovered/Resolved]
  - Retinal vascular occlusion [Recovered/Resolved]
